FAERS Safety Report 9170496 (Version 1)
Quarter: 2013Q1

REPORT INFORMATION
  Report Type: Spontaneous
  Country: US (occurrence: None)
  Receive Date: 20130307
  Receipt Date: 20130307
  Transmission Date: 20140127
  Serious: Yes (Hospitalization)
  Sender: FDA-Public Use
  Company Number: SYM-2013-01034

PATIENT
  Age: 48 Year
  Sex: Male

DRUGS (7)
  1. VENLAFAXINE HYDROCHLORIDE [Suspect]
     Indication: PRODUCT USED FOR UNKNOWN INDICATION
  2. BUPROPION HYDROCHLORIDE [Suspect]
     Indication: DEPRESSION
  3. BUPROPION HYDROCHLORIDE [Suspect]
     Indication: ANXIETY
  4. CLONAZEPAM (CLONAZEPAM) (CLONAZEPAM) [Suspect]
     Indication: PRODUCT USED FOR UNKNOWN INDICATION
  5. HYDROXYZINE [Concomitant]
  6. METOPROLOL (METOPROLOL) (METOPROLOL) [Concomitant]
  7. LORAZEPAM (LORAZEPAM) (LORAZEPAM) [Concomitant]

REACTIONS (10)
  - Psychotic disorder [None]
  - Confusional state [None]
  - Delusion [None]
  - Abnormal behaviour [None]
  - Restlessness [None]
  - Hallucination, visual [None]
  - Tremor [None]
  - Incorrect dose administered [None]
  - Hallucination, auditory [None]
  - Hyperhidrosis [None]
